FAERS Safety Report 4622234-3 (Version None)
Quarter: 2005Q1

REPORT INFORMATION
  Report Type: 
  Country: None (occurrence: None)
  Receive Date: 20050330
  Receipt Date: 20050318
  Transmission Date: 20050727
  Serious: Yes (Other)
  Sender: FDA-Public Use
  Company Number: US-JNJFOC-20040802675

PATIENT
  Sex: Female
  Weight: 58.97 kg

DRUGS (11)
  1. REMICADE [Suspect]
     Route: 042
  2. REMICADE [Suspect]
     Dosage: 1 2/3 VIALS
     Route: 042
  3. REMICADE [Suspect]
     Indication: RHEUMATOID ARTHRITIS
     Route: 042
  4. VIOXX [Concomitant]
  5. ULTRAM [Concomitant]
     Indication: RHEUMATOID ARTHRITIS
  6. XANAX [Concomitant]
     Indication: ANXIETY
  7. METHOTREXATE [Concomitant]
     Indication: RHEUMATOID ARTHRITIS
  8. METHOTREXATE [Concomitant]
  9. FOSAMAX [Concomitant]
  10. CLARITIN [Concomitant]
     Indication: HYPERSENSITIVITY
  11. TYLENOL (CAPLET) [Concomitant]
     Indication: HYPERSENSITIVITY

REACTIONS (7)
  - DYSPHAGIA [None]
  - DYSPNOEA [None]
  - ERYTHEMA [None]
  - INFUSION RELATED REACTION [None]
  - PRURITUS [None]
  - THROAT TIGHTNESS [None]
  - URTICARIA [None]
